FAERS Safety Report 16864047 (Version 1)
Quarter: 2019Q3

REPORT INFORMATION
  Report Type: Spontaneous
  Country: CA (occurrence: CA)
  Receive Date: 20190927
  Receipt Date: 20190927
  Transmission Date: 20191005
  Serious: Yes (Other)
  Sender: FDA-Public Use
  Company Number: CA-PFIZER INC-2019107148

PATIENT
  Age: 46 Year
  Sex: Male

DRUGS (12)
  1. PREDNISONE. [Concomitant]
     Active Substance: PREDNISONE
     Dosage: 10 MG, DAILY
     Dates: start: 2019
  2. TURMERIC [CURCUMA LONGA RHIZOME] [Concomitant]
     Active Substance: HERBALS\TURMERIC
     Dosage: UNK
  3. HUMIRA [Concomitant]
     Active Substance: ADALIMUMAB
     Dosage: 250 MG, DAILY
  4. BERBERINE [Concomitant]
     Active Substance: BERBERINE
     Dosage: UNK
  5. ADRENAL [Concomitant]
     Active Substance: EPINEPHRINE
     Dosage: UNK
  6. XELJANZ [Suspect]
     Active Substance: TOFACITINIB CITRATE
     Indication: COLITIS ULCERATIVE
     Dosage: 10 MG, 2X/DAY
     Route: 048
     Dates: start: 20190315, end: 201909
  7. FERAMAX [Concomitant]
     Active Substance: IRON\POLYSACCHARIDES
     Dosage: UNK
  8. PREDNISONE. [Concomitant]
     Active Substance: PREDNISONE
     Dosage: 20 MG, DAILY
     Route: 065
     Dates: start: 2019
  9. IMURAN [Concomitant]
     Active Substance: AZATHIOPRINE
     Dosage: 250 MG, DAILY
  10. GLUTAMINE [Concomitant]
     Active Substance: GLUTAMINE
     Dosage: UNK
  11. PREDNISONE. [Concomitant]
     Active Substance: PREDNISONE
     Dosage: 15 MG, DAILY
  12. SALOFALK [MESALAZINE] [Concomitant]
     Active Substance: MESALAMINE
     Dosage: 600 MG, TWICE DAILY

REACTIONS (5)
  - Postoperative wound infection [Unknown]
  - Contraindicated product administered [Unknown]
  - Productive cough [Unknown]
  - Nasopharyngitis [Recovering/Resolving]
  - Mucosal discolouration [Unknown]

NARRATIVE: CASE EVENT DATE: 201909
